FAERS Safety Report 11116463 (Version 1)
Quarter: 2015Q2

REPORT INFORMATION
  Report Type: Spontaneous
  Country: US (occurrence: None)
  Receive Date: 20150514
  Receipt Date: 20150514
  Transmission Date: 20150821
  Serious: Yes (Life-Threatening, Hospitalization)
  Sender: FDA-Public Use
  Company Number: None

PATIENT
  Age: 72 Year
  Sex: Female
  Weight: 132 kg

DRUGS (12)
  1. 5-HTP [Concomitant]
     Active Substance: OXITRIPTAN
  2. D3 [Concomitant]
     Active Substance: 25-HYDROXYCHOLECALCIFEROL, 5-TRANS-
  3. CARVEDILOL. [Concomitant]
     Active Substance: CARVEDILOL
  4. CQ-10 [Concomitant]
  5. METFORMIN [Concomitant]
     Active Substance: METFORMIN HYDROCHLORIDE
  6. KRILL [Concomitant]
  7. DILTIAZEM [Concomitant]
     Active Substance: DILTIAZEM
  8. VITAMIN B COMPLEX [Concomitant]
     Active Substance: CYANOCOBALAMIN\DEXPANTHENOL\NIACINAMIDE\PYRIDOXINE HYDROCHLORIDE\RIBOFLAVIN 5^-PHOSPHATE SODIUM\THIAMINE HYDROCHLORIDE\VITAMIN B COMPLEX
  9. PRAVACHOL [Suspect]
     Active Substance: PRAVASTATIN SODIUM
     Indication: BLOOD CHOLESTEROL INCREASED
     Dosage: 1 PILL
     Route: 048
     Dates: end: 20150322
  10. ASA [Concomitant]
     Active Substance: ASPIRIN
  11. LANTUS [Concomitant]
     Active Substance: INSULIN GLARGINE
  12. MG [Concomitant]
     Active Substance: MAGNESIUM

REACTIONS (10)
  - Dysstasia [None]
  - Dyspepsia [None]
  - Muscle spasms [None]
  - Mental impairment [None]
  - Memory impairment [None]
  - Neck pain [None]
  - Muscular weakness [None]
  - Gait disturbance [None]
  - Musculoskeletal pain [None]
  - Constipation [None]

NARRATIVE: CASE EVENT DATE: 20150113
